FAERS Safety Report 10936618 (Version 1)
Quarter: 2015Q1

REPORT INFORMATION
  Report Type: Spontaneous
  Country: None (occurrence: None)
  Receive Date: 20150320
  Receipt Date: 20150320
  Transmission Date: 20150721
  Serious: No
  Sender: FDA-Public Use
  Company Number: None

PATIENT
  Age: 29 Year
  Sex: Female

DRUGS (3)
  1. MULTIVITAMIN [Concomitant]
     Active Substance: VITAMINS
  2. MINOCYCLINE 100MG GENERIC [Suspect]
     Active Substance: MINOCYCLINE HYDROCHLORIDE
     Route: 048
  3. BENZACLIN [Concomitant]
     Active Substance: BENZOYL PEROXIDE\CLINDAMYCIN PHOSPHATE

REACTIONS (2)
  - Gastrointestinal disorder [None]
  - Nausea [None]

NARRATIVE: CASE EVENT DATE: 20140421
